FAERS Safety Report 24331380 (Version 1)
Quarter: 2024Q3

REPORT INFORMATION
  Report Type: Report from Study
  Country: US (occurrence: US)
  Receive Date: 20240918
  Receipt Date: 20240918
  Transmission Date: 20241016
  Serious: Yes (Hospitalization, Other)
  Sender: GILEAD
  Company Number: US-GILEAD-2024-0687931

PATIENT
  Sex: Male

DRUGS (3)
  1. AZTREONAM LYSINE [Suspect]
     Active Substance: AZTREONAM LYSINE
     Indication: Cystic fibrosis
     Dosage: INHALE 1 VIAL (75 MG) VIA ALTERA NEBULIZER THREE TIMES DAILY, FOR 28 DAYS ON AND 28 DAYS OFF
     Route: 055
  2. TOBRAMYCIN [Concomitant]
     Active Substance: TOBRAMYCIN\TOBRAMYCIN SULFATE
     Dosage: INHALE 300 MG (1 AMPULE) VIA NEBULIZER TWO TIMES A DAY FOR 28 DAYS ON AND 28 DAYS OFF
     Route: 055
  3. PULMOZYME [Concomitant]
     Active Substance: DORNASE ALFA
     Dosage: INHALE 1 AMPULE (2.5 MG) VIA NEBULIZER ONCE A DAY
     Route: 055

REACTIONS (1)
  - Pneumonia [Unknown]
